FAERS Safety Report 19078653 (Version 6)
Quarter: 2023Q4

REPORT INFORMATION
  Report Type: Other
  Country: JP (occurrence: JP)
  Receive Date: 20210331
  Receipt Date: 20231207
  Transmission Date: 20240110
  Serious: Yes (Death, Hospitalization, Other)
  Sender: FDA-Public Use
  Company Number: JP-CHUGAI-A2021012578ROCHE

PATIENT
  Age: 6 Decade
  Sex: Male

DRUGS (5)
  1. TECENTRIQ [Suspect]
     Active Substance: ATEZOLIZUMAB
     Indication: Hepatocellular carcinoma
     Route: 041
     Dates: start: 20201113, end: 20210506
  2. AVASTIN [Suspect]
     Active Substance: BEVACIZUMAB
     Indication: Hepatocellular carcinoma
     Route: 041
     Dates: start: 20201113, end: 20210506
  3. DEXAMETHASONE [Concomitant]
     Active Substance: DEXAMETHASONE
  4. HYDROCORTISONE [Concomitant]
     Active Substance: HYDROCORTISONE
  5. LENVATINIB [Concomitant]
     Active Substance: LENVATINIB

REACTIONS (7)
  - Facial paralysis [Recovered/Resolved]
  - Hypopituitarism [Recovered/Resolved]
  - Oesophageal varices haemorrhage [Unknown]
  - Varices oesophageal [Unknown]
  - Adrenal insufficiency [Recovering/Resolving]
  - Disease progression [Fatal]
  - Metastases to lung [Not Recovered/Not Resolved]

NARRATIVE: CASE EVENT DATE: 20210318
